FAERS Safety Report 23195550 (Version 1)
Quarter: 2023Q4

REPORT INFORMATION
  Report Type: Spontaneous
  Country: JP (occurrence: JP)
  Receive Date: 20231117
  Receipt Date: 20231117
  Transmission Date: 20240109
  Serious: Yes (Disabling)
  Sender: FDA-Public Use
  Company Number: JP-BAYER-2023A096124

PATIENT
  Sex: Female

DRUGS (6)
  1. EYLEA [Suspect]
     Active Substance: AFLIBERCEPT
     Indication: Retinopathy of prematurity
     Dosage: 0.4 MG, RIGHT EYE, ONCE, SOLUTION FOR INJECTION, 40 MG/ML
     Route: 031
     Dates: start: 20230105, end: 20230105
  2. EYLEA [Suspect]
     Active Substance: AFLIBERCEPT
     Dosage: 0.4 MG, LEFT EYE, ONCE , SOLUTION FOR INJECTION, 40 MG/ML
     Route: 031
     Dates: start: 20230105, end: 20230105
  3. BENOXINATE HYDROCHLORIDE [Concomitant]
     Active Substance: BENOXINATE HYDROCHLORIDE
     Indication: Product used for unknown indication
     Dosage: BOTH EYES
     Route: 047
  4. NEOJODIN [Concomitant]
     Indication: Product used for unknown indication
     Dosage: BOTH EYES AND EYELIDS
  5. MYDRIATICS AND CYCLOPLEGICS [Concomitant]
     Indication: Product used for unknown indication
     Route: 047
  6. FENTANYL [Concomitant]
     Active Substance: FENTANYL\FENTANYL CITRATE
     Indication: Product used for unknown indication
     Route: 041

REACTIONS (1)
  - Macular degeneration [Not Recovered/Not Resolved]

NARRATIVE: CASE EVENT DATE: 20230710
